FAERS Safety Report 4883702-2 (Version None)
Quarter: 2005Q4

REPORT INFORMATION
  Report Type: 
  Country: None (occurrence: None)
  Receive Date: 20051201
  Receipt Date: 20050901
  Transmission Date: 20060501
  Serious: No
  Sender: FDA-Public Use
  Company Number: 2005PV001776

PATIENT
  Age: 55 Year
  Sex: Male
  Weight: 108.8633 kg

DRUGS (5)
  1. BYETTA [Suspect]
     Indication: DIABETES MELLITUS NON-INSULIN-DEPENDENT
     Dosage: 10 MCG; BID; SC
     Route: 058
     Dates: start: 20050827, end: 20050829
  2. ATROVENT [Concomitant]
  3. SALINE SOLUTION [Concomitant]
  4. GLUCOVANCE [Concomitant]
  5. GLUCOPHAGE [Concomitant]

REACTIONS (3)
  - CHOLELITHIASIS [None]
  - NAUSEA [None]
  - NEPHROLITHIASIS [None]
